FAERS Safety Report 5275471-1 (Version None)
Quarter: 2007Q1

REPORT INFORMATION
  Report Type: 
  Country: None (occurrence: None)
  Receive Date: 20070326
  Receipt Date: 20070313
  Transmission Date: 20070707
  Serious: Yes (Hospitalization)
  Sender: FDA-Public Use
  Company Number: JP-ROCHE-485282

PATIENT
  Age: 56 Year
  Sex: Female

DRUGS (5)
  1. TAMIFLU [Suspect]
     Indication: INFLUENZA
     Route: 048
     Dates: start: 20070213, end: 20070213
  2. TAMIFLU [Suspect]
     Route: 048
     Dates: start: 20070214, end: 20070217
  3. TAMIFLU [Suspect]
     Route: 048
     Dates: start: 20070218, end: 20070218
  4. NU-LOTAN [Concomitant]
     Route: 048
  5. NORVASC [Concomitant]
     Route: 048

REACTIONS (3)
  - CHOLESTASIS [None]
  - HALLUCINATION [None]
  - RENAL DISORDER [None]
